FAERS Safety Report 21163544 (Version 2)
Quarter: 2022Q3

REPORT INFORMATION
  Report Type: Report from Study
  Country: DE (occurrence: DE)
  Receive Date: 20220802
  Receipt Date: 20220817
  Transmission Date: 20221027
  Serious: Yes (Hospitalization)
  Sender: FDA-Public Use
  Company Number: DE-BRISTOL-MYERS SQUIBB COMPANY-2022-078449

PATIENT
  Sex: Female
  Weight: 77.2 kg

DRUGS (7)
  1. LENALIDOMIDE [Suspect]
     Active Substance: LENALIDOMIDE
     Indication: Plasma cell myeloma
     Route: 048
     Dates: start: 20200915, end: 20220714
  2. LENALIDOMIDE [Suspect]
     Active Substance: LENALIDOMIDE
     Dosage: DRUG DISCONTINUED FROM 15-JUL-2022 TO 14-AUG-2022
     Route: 065
     Dates: end: 20220715
  3. ISATUXIMAB [Suspect]
     Active Substance: ISATUXIMAB
     Indication: Plasma cell myeloma
     Route: 042
     Dates: start: 20210628, end: 20220711
  4. BORTEZOMIB [Suspect]
     Active Substance: BORTEZOMIB
     Indication: Plasma cell myeloma
     Route: 058
     Dates: start: 20200915, end: 20201127
  5. DEXAMETHASONE [Suspect]
     Active Substance: DEXAMETHASONE
     Indication: Plasma cell myeloma
     Route: 048
     Dates: start: 20200915, end: 20210108
  6. MELPHALAN [Concomitant]
     Active Substance: MELPHALAN
     Indication: Product used for unknown indication
     Dosage: HIGH DOSE THERAPY
     Route: 065
     Dates: start: 20210309
  7. NEUPOGEN [Concomitant]
     Active Substance: FILGRASTIM
     Indication: Haematopoietic stem cell mobilisation
     Dosage: 30 MIO IE, G-CSF
     Route: 065
     Dates: start: 20210211

REACTIONS (1)
  - COVID-19 [Recovered/Resolved]

NARRATIVE: CASE EVENT DATE: 20220715
